FAERS Safety Report 22106717 (Version 1)
Quarter: 2023Q1

REPORT INFORMATION
  Report Type: Spontaneous
  Country: US (occurrence: US)
  Receive Date: 20230317
  Receipt Date: 20230317
  Transmission Date: 20230418
  Serious: No
  Sender: FDA-Public Use
  Company Number: US-SA-SAC20230310001446

PATIENT
  Age: 40 Year
  Sex: Female

DRUGS (2)
  1. AUBAGIO [Suspect]
     Active Substance: TERIFLUNOMIDE
     Indication: Multiple sclerosis
     Dosage: UNK
     Route: 065
  2. OCREVUS [Concomitant]
     Active Substance: OCRELIZUMAB

REACTIONS (3)
  - Abdominal discomfort [Unknown]
  - Malaise [Unknown]
  - Diarrhoea [Unknown]
